FAERS Safety Report 11415402 (Version 2)
Quarter: 2015Q4

REPORT INFORMATION
  Report Type: Spontaneous
  Country: US (occurrence: US)
  Receive Date: 20150825
  Receipt Date: 20151015
  Transmission Date: 20160304
  Serious: Yes (Death, Other)
  Sender: FDA-Public Use
  Company Number: US-BRISTOL-MYERS SQUIBB COMPANY-BMS-2015-054534

PATIENT
  Sex: Female

DRUGS (1)
  1. OPDIVO [Suspect]
     Active Substance: NIVOLUMAB
     Indication: SQUAMOUS CELL CARCINOMA OF LUNG
     Dosage: UNK UNK, Q2WK
     Route: 065
     Dates: start: 20150527, end: 20150707

REACTIONS (3)
  - Metastases to liver [Fatal]
  - Nystagmus [Unknown]
  - Dizziness [Unknown]

NARRATIVE: CASE EVENT DATE: 20150725
